FAERS Safety Report 6346963-9 (Version None)
Quarter: 2009Q3

REPORT INFORMATION
  Report Type: 
  Country: None (occurrence: None)
  Receive Date: 20090909
  Receipt Date: 20090909
  Transmission Date: 20100115
  Serious: Yes (Hospitalization, Other)
  Sender: FDA-Public Use
  Company Number: None

PATIENT
  Age: 62 Year
  Sex: Female
  Weight: 64.9 kg

DRUGS (1)
  1. METOPROLOL TARTRATE [Suspect]
     Indication: CARDIAC FAILURE CONGESTIVE
     Dosage: 25MG TWICE DAILY PO
     Route: 048
     Dates: start: 20090826, end: 20090903

REACTIONS (3)
  - EXTRADURAL HAEMATOMA [None]
  - MENTAL STATUS CHANGES [None]
  - URINARY TRACT INFECTION [None]
